FAERS Safety Report 7094324-X (Version None)
Quarter: 2010Q4

REPORT INFORMATION
  Report Type: 
  Country: None (occurrence: None)
  Receive Date: 20101110
  Receipt Date: 20101101
  Transmission Date: 20110411
  Serious: Yes (Other)
  Sender: FDA-Public Use
  Company Number: FR-TEVA-211385ISR

PATIENT
  Age: 40 Year
  Sex: Male

DRUGS (2)
  1. TRAMADOL HCL [Suspect]
     Indication: BACK PAIN
  2. TRAMADOL HCL [Suspect]

REACTIONS (4)
  - DRUG ABUSE [None]
  - DRUG DEPENDENCE [None]
  - DRUG WITHDRAWAL SYNDROME [None]
  - TIC [None]
